FAERS Safety Report 10328586 (Version 2)
Quarter: 2014Q1

REPORT INFORMATION
  Report Type: Spontaneous
  Country: US (occurrence: None)
  Receive Date: 20120817
  Receipt Date: 20130815
  Transmission Date: 20141002
  Serious: Yes (Hospitalization, Other)
  Sender: FDA-Public Use
  Company Number: ADR-2012-00665

PATIENT
  Sex: Male

DRUGS (5)
  1. BACLOFEN INTRATHECAL(BACLOFEN INJECTION) [Suspect]
     Indication: PAIN
  2. BACLOFEN INTRATHECAL(BACLOFEN INJECTION) [Suspect]
     Indication: BACK PAIN
  3. FENTANYL [Concomitant]
  4. CLONIDINE [Concomitant]
  5. BUPIVACAINE [Concomitant]

REACTIONS (8)
  - Malaise [None]
  - Pain [None]
  - No therapeutic response [None]
  - Medical device complication [None]
  - Nervousness [None]
  - Hypotension [None]
  - Hypertension [None]
  - Weight decreased [None]
